FAERS Safety Report 19808014 (Version 6)
Quarter: 2022Q1

REPORT INFORMATION
  Report Type: Spontaneous
  Country: US (occurrence: None)
  Receive Date: 20210909
  Receipt Date: 20220211
  Transmission Date: 20220423
  Serious: Yes (Life-Threatening, Hospitalization, Other)
  Sender: FDA-Public Use
  Company Number: US-ULTRAGENYX PHARMACEUTICAL INC.-US-UGNX-21-00291

PATIENT
  Age: 3 Year
  Sex: Male
  Weight: 12.8 kg

DRUGS (8)
  1. DOJOLVI [Suspect]
     Active Substance: TRIHEPTANOIN
     Indication: Very long-chain acyl-coenzyme A dehydrogenase deficiency
     Dates: start: 20210507, end: 20210822
  2. DOJOLVI [Suspect]
     Active Substance: TRIHEPTANOIN
     Dosage: VIA G-TUBE
  3. DOJOLVI [Suspect]
     Active Substance: TRIHEPTANOIN
     Dosage: 124.5 KCAL FOUR TIMES DAILY VIA FEEDING TUBE
     Dates: start: 20210821
  4. MIRALAX [Concomitant]
     Active Substance: POLYETHYLENE GLYCOL 3350
     Indication: Product used for unknown indication
     Dosage: 1/2 CAPFUL
     Route: 048
  5. PEDIASURE ENTERAL FORMULA [Concomitant]
     Indication: Product used for unknown indication
     Dosage: VIA G-TUBE
  6. MONOGEN [Concomitant]
     Indication: Product used for unknown indication
     Dosage: 5 SCOOPS PER 3 OUNCES/ 1 OUNCES 2% MILK
     Route: 048
  7. MCT OIL [Concomitant]
     Indication: Product used for unknown indication
     Route: 048
  8. CARNITOR [Concomitant]
     Active Substance: LEVOCARNITINE
     Indication: Product used for unknown indication
     Dosage: 1GM/10ML SOLUTION
     Route: 048

REACTIONS (5)
  - Cardiac arrest [Not Recovered/Not Resolved]
  - Heart transplant [Recovering/Resolving]
  - Cardiac failure acute [Unknown]
  - Acute respiratory failure [Unknown]
  - Transaminases increased [Unknown]

NARRATIVE: CASE EVENT DATE: 20210825
